FAERS Safety Report 7935844-2 (Version None)
Quarter: 2011Q4

REPORT INFORMATION
  Report Type: 
  Country: None (occurrence: None)
  Receive Date: 20111123
  Receipt Date: 20111116
  Transmission Date: 20120403
  Serious: Yes (Other)
  Sender: FDA-Public Use
  Company Number: US-BAYER-2011-105745

PATIENT
  Age: 59 Year
  Sex: Male

DRUGS (3)
  1. SORAFENIB (RAF KINASE INHIBITOR) [Suspect]
     Indication: HEPATIC NEOPLASM MALIGNANT
     Dosage: 400 MG, BID
     Dates: end: 20110801
  2. SORAFENIB (RAF KINASE INHIBITOR) [Suspect]
     Dosage: 400 MG, BID
     Route: 048
     Dates: start: 20111101, end: 20111107
  3. SORAFENIB (RAF KINASE INHIBITOR) [Suspect]
     Dosage: 400 MG, BID
     Dates: start: 20111027, end: 20111030

REACTIONS (8)
  - FATIGUE [None]
  - APHAGIA [None]
  - VISION BLURRED [None]
  - HYPOPHAGIA [None]
  - HEADACHE [None]
  - WEIGHT DECREASED [None]
  - HYPERSOMNIA [None]
  - ASTHENIA [None]
